FAERS Safety Report 9899362 (Version 2)
Quarter: 2014Q3

REPORT INFORMATION
  Report Type: Spontaneous
  Country: US (occurrence: US)
  Receive Date: 20140214
  Receipt Date: 20140731
  Transmission Date: 20150326
  Serious: Yes (Hospitalization, Other)
  Sender: FDA-Public Use
  Company Number: US-009507513-1402USA006497

PATIENT
  Sex: Female
  Weight: 106.58 kg

DRUGS (1)
  1. NUVARING [Suspect]
     Active Substance: ETHINYL ESTRADIOL\ETONOGESTREL
     Indication: CONTRACEPTION
     Dosage: UNK
     Route: 067
     Dates: end: 20121006

REACTIONS (31)
  - Cerebral artery thrombosis [Unknown]
  - White matter lesion [Unknown]
  - Central nervous system inflammation [Unknown]
  - Lesion excision [Unknown]
  - Back disorder [Unknown]
  - Smear cervix abnormal [Unknown]
  - Embolism arterial [Unknown]
  - Surgery [Unknown]
  - Loop electrosurgical excision procedure [Unknown]
  - Anxiety disorder [Unknown]
  - Multiple sclerosis [Unknown]
  - Melanocytic naevus [Unknown]
  - Precancerous cells present [Unknown]
  - Panic attack [Unknown]
  - Arthritis [Unknown]
  - Lyme disease [Unknown]
  - Depression [Unknown]
  - Cerebral infarction [Unknown]
  - Thrombophlebitis superficial [Unknown]
  - Deep vein thrombosis [Unknown]
  - Localised infection [Unknown]
  - Central nervous system infection [Unknown]
  - Cervical dysplasia [Unknown]
  - Cerebral ischaemia [Unknown]
  - Deep vein thrombosis [Unknown]
  - Headache [Recovering/Resolving]
  - Hyperlipidaemia [Unknown]
  - Colposcopy [Unknown]
  - Hypoaesthesia [Recovering/Resolving]
  - Autoimmune disorder [Unknown]
  - Wisdom teeth removal [Unknown]

NARRATIVE: CASE EVENT DATE: 200606
